FAERS Safety Report 6152407-2 (Version None)
Quarter: 2009Q2

REPORT INFORMATION
  Report Type: 
  Country: None (occurrence: None)
  Receive Date: 20090413
  Receipt Date: 20090409
  Transmission Date: 20091009
  Serious: Yes (Death)
  Sender: FDA-Public Use
  Company Number: GB-JNJFOC-20090401991

PATIENT
  Sex: Male

DRUGS (1)
  1. REOPRO [Suspect]
     Indication: PERCUTANEOUS CORONARY INTERVENTION

REACTIONS (1)
  - HAEMORRHAGE INTRACRANIAL [None]
